FAERS Safety Report 15501244 (Version 4)
Quarter: 2018Q4

REPORT INFORMATION
  Report Type: Report from Study
  Country: US (occurrence: US)
  Receive Date: 20181015
  Receipt Date: 20181226
  Transmission Date: 20190205
  Serious: Yes (Hospitalization)
  Sender: FDA-Public Use
  Company Number: US-ACTELION-A-NJ2018-169478

PATIENT
  Age: 37 Year
  Sex: Female
  Weight: 63.95 kg

DRUGS (10)
  1. VELETRI [Suspect]
     Active Substance: EPOPROSTENOL
     Indication: PULMONARY HYPERTENSION
     Dosage: 34 NG/KG, PER MIN
     Route: 042
  2. ADEMPAS [Concomitant]
     Active Substance: RIOCIGUAT
  3. UPTRAVI [Concomitant]
     Active Substance: SELEXIPAG
     Route: 048
  4. BUMEX [Concomitant]
     Active Substance: BUMETANIDE
  5. VELETRI [Suspect]
     Active Substance: EPOPROSTENOL
     Dosage: 8 NG/KG, PER MIN
     Route: 042
  6. VELETRI [Suspect]
     Active Substance: EPOPROSTENOL
     Dosage: 22 NG/KG, PER MIN
     Route: 042
  7. DOXYCYCLINE. [Concomitant]
     Active Substance: DOXYCYCLINE
  8. OMEPRAZOLE. [Concomitant]
     Active Substance: OMEPRAZOLE
  9. OPSUMIT [Suspect]
     Active Substance: MACITENTAN
     Indication: PULMONARY HYPERTENSION
     Dosage: 10 MG, QD
     Route: 048
     Dates: start: 20170118
  10. SPIRONOLACTONE. [Concomitant]
     Active Substance: SPIRONOLACTONE

REACTIONS (10)
  - Fluid retention [Unknown]
  - Ascites [Unknown]
  - Emergency care [Unknown]
  - Hospitalisation [Unknown]
  - Malaise [Unknown]
  - Nausea [Unknown]
  - Peripheral swelling [Unknown]
  - Weight increased [Unknown]
  - Catheter site infection [Unknown]
  - Catheter management [Unknown]

NARRATIVE: CASE EVENT DATE: 201805
